FAERS Safety Report 9383684 (Version 1)
Quarter: 2013Q3

REPORT INFORMATION
  Report Type: Spontaneous
  Country: FR (occurrence: FR)
  Receive Date: 20130704
  Receipt Date: 20130704
  Transmission Date: 20140515
  Serious: Yes (Hospitalization)
  Sender: FDA-Public Use
  Company Number: FR-009507513-1307FRA000968

PATIENT
  Age: 81 Year
  Sex: Female

DRUGS (4)
  1. FOSAVANCE [Suspect]
     Dosage: 1 DF, QW
  2. FIXICAL VITAMINE D3 [Suspect]
     Dosage: 2 DF, QD
  3. LAMICTAL [Concomitant]
     Indication: MENINGIOMA
     Dosage: UNK
  4. FORTZAAR 100 MG/25 MG, COMPRIM? PELLICUL? [Concomitant]
     Indication: HYPERTENSION
     Dosage: UNK

REACTIONS (1)
  - Hypercalcaemia [Recovering/Resolving]
